FAERS Safety Report 9711523 (Version 1)
Quarter: 2013Q4

REPORT INFORMATION
  Report Type: Spontaneous
  Country: US (occurrence: US)
  Receive Date: 20131126
  Receipt Date: 20131126
  Transmission Date: 20140711
  Serious: No
  Sender: FDA-Public Use
  Company Number: US-BRISTOL-MYERS SQUIBB COMPANY-19068279

PATIENT
  Age: 60 Year
  Sex: Male
  Weight: 103.4 kg

DRUGS (13)
  1. BYDUREON 2MG SUSPENSION [Suspect]
     Indication: TYPE 2 DIABETES MELLITUS
     Route: 058
  2. FENOFIBRATE [Concomitant]
  3. TERAZOSIN [Concomitant]
  4. ATORVASTATIN [Concomitant]
  5. GLIMEPIRIDE [Concomitant]
  6. FELODIPINE [Concomitant]
  7. LISINOPRIL [Concomitant]
  8. FEXOFENADINE HCL [Concomitant]
  9. ATENOLOL [Concomitant]
  10. PRILOSEC [Concomitant]
  11. FISH OIL [Concomitant]
  12. MULTIVITAMIN [Concomitant]
  13. TYLENOL [Concomitant]

REACTIONS (6)
  - Injection site pain [Unknown]
  - Injection site haemorrhage [Unknown]
  - Injection site pain [Unknown]
  - Injection site extravasation [Unknown]
  - Weight decreased [Unknown]
  - Injection site nodule [Unknown]
